FAERS Safety Report 5247533-6 (Version None)
Quarter: 2007Q1

REPORT INFORMATION
  Report Type: 
  Country: None (occurrence: None)
  Receive Date: 20070227
  Receipt Date: 20070214
  Transmission Date: 20070707
  Serious: Yes (Hospitalization)
  Sender: FDA-Public Use
  Company Number: PHBS2007IT03055

PATIENT
  Age: 53 Year
  Sex: Male

DRUGS (3)
  1. TOLEP [Suspect]
     Indication: EPILEPSY
     Dosage: 1800 MG/DAY
     Dates: start: 20040919
  2. TOPAMAX [Suspect]
     Indication: EPILEPSY
     Dosage: 150 MG/DAY
     Dates: start: 20061109, end: 20070201
  3. TOPAMAX [Suspect]
     Dosage: 200 MG/DAY
     Dates: start: 20070201

REACTIONS (3)
  - EPILEPSY [None]
  - RIB FRACTURE [None]
  - ROAD TRAFFIC ACCIDENT [None]
